FAERS Safety Report 7368034-5 (Version None)
Quarter: 2011Q1

REPORT INFORMATION
  Report Type: 
  Country: None (occurrence: None)
  Receive Date: 20110323
  Receipt Date: 20110316
  Transmission Date: 20110831
  Serious: Yes (Other)
  Sender: FDA-Public Use
  Company Number: US-BRISTOL-MYERS SQUIBB COMPANY-15611940

PATIENT
  Age: 79 Year
  Sex: Female
  Weight: 61 kg

DRUGS (6)
  1. DILTIAZEM HCL [Concomitant]
  2. LISINOPRIL [Concomitant]
  3. PEPCID [Concomitant]
  4. COUMADIN [Suspect]
  5. FOLIC ACID [Concomitant]
  6. CRESTOR [Concomitant]

REACTIONS (2)
  - THROMBOSIS [None]
  - ILEUS PARALYTIC [None]
